FAERS Safety Report 6256002-6 (Version None)
Quarter: 2009Q3

REPORT INFORMATION
  Report Type: 
  Country: None (occurrence: None)
  Receive Date: 20090706
  Receipt Date: 20090626
  Transmission Date: 20100115
  Serious: Yes (Hospitalization)
  Sender: FDA-Public Use
  Company Number: JP-PFIZER INC-2009226206

PATIENT
  Age: 63 Year

DRUGS (5)
  1. NORVASC [Suspect]
     Dosage: 5 MG, 1X/DAY
     Route: 048
     Dates: start: 20070101
  2. DIOVANE [Concomitant]
     Dosage: 80 MG, 1X/DAY
     Route: 048
     Dates: start: 20070101, end: 20080201
  3. MICARDIS [Concomitant]
     Dosage: UNK
     Route: 048
     Dates: start: 20080301
  4. PLETAL [Concomitant]
     Dosage: UNK
     Route: 048
     Dates: start: 20071101
  5. GASTER OD [Concomitant]
     Dosage: UNK
     Route: 048
     Dates: start: 20071101

REACTIONS (3)
  - CEREBRAL INFARCTION [None]
  - DRY SKIN [None]
  - PARAESTHESIA [None]
